FAERS Safety Report 7515036-1 (Version None)
Quarter: 2011Q2

REPORT INFORMATION
  Report Type: 
  Country: None (occurrence: None)
  Receive Date: 20110601
  Receipt Date: 20110525
  Transmission Date: 20111010
  Serious: Yes (Other)
  Sender: FDA-Public Use
  Company Number: PHHY2011BR45991

PATIENT
  Sex: Male

DRUGS (4)
  1. FORMOTEROL FUMARATE [Suspect]
     Indication: BRONCHIAL DISORDER
  2. DIOVAN HCT [Suspect]
  3. AZOPIT [Suspect]
     Indication: BRONCHIAL DISORDER
  4. CHARTATAN [Suspect]
     Indication: BRONCHIAL DISORDER

REACTIONS (2)
  - GLAUCOMA [None]
  - CARDIAC DISORDER [None]
